FAERS Safety Report 12188576 (Version 2)
Quarter: 2016Q2

REPORT INFORMATION
  Report Type: Spontaneous
  Country: FR (occurrence: FR)
  Receive Date: 20160317
  Receipt Date: 20160513
  Transmission Date: 20160815
  Serious: Yes (Other)
  Sender: FDA-Public Use
  Company Number: FR-SEPTODONT-201603268

PATIENT
  Sex: Female

DRUGS (1)
  1. DELTAZINE 40 MG/ML ADR?NALIN?E AU 1/200.000 [Suspect]
     Active Substance: ARTICAINE\EPINEPHRINE
     Indication: LOCAL ANAESTHESIA
     Route: 004

REACTIONS (3)
  - Injection site necrosis [Recovering/Resolving]
  - Oral discomfort [Unknown]
  - Injection site pain [Unknown]
